FAERS Safety Report 9705639 (Version 1)
Quarter: 2013Q4

REPORT INFORMATION
  Report Type: Spontaneous
  Country: FR (occurrence: FR)
  Receive Date: 20131122
  Receipt Date: 20131122
  Transmission Date: 20140711
  Serious: Yes (Life-Threatening, Hospitalization)
  Sender: FDA-Public Use
  Company Number: FR-ASTRAZENECA-2013SE84953

PATIENT
  Age: 15919 Day
  Sex: Male

DRUGS (9)
  1. XYLOCAINE [Suspect]
     Dates: start: 20130917, end: 20130924
  2. EFFEXOR [Suspect]
     Dates: start: 20130917, end: 20130924
  3. CETUXIMAB [Suspect]
     Indication: OROPHARYNGEAL SQUAMOUS CELL CARCINOMA
     Dates: start: 20130917, end: 20130917
  4. POLARAMINE [Suspect]
     Dates: start: 20130917, end: 20130917
  5. SOLUMEDROL [Suspect]
     Dates: start: 20130917, end: 20130917
  6. LAROXYL [Suspect]
     Dates: start: 20130917, end: 20130924
  7. SKENAN [Suspect]
     Dates: end: 20130920
  8. ORAMORPH [Suspect]
     Dates: end: 20130920
  9. KETAMINE [Suspect]
     Dates: end: 20130920

REACTIONS (14)
  - Dyspnoea [Recovered/Resolved]
  - Pneumonia [Recovered/Resolved]
  - Pyrexia [Recovered/Resolved]
  - Escherichia test positive [Unknown]
  - Acinetobacter test positive [Unknown]
  - Oxygen saturation decreased [Unknown]
  - Klebsiella test positive [Unknown]
  - Acute respiratory distress syndrome [Unknown]
  - Bronchoalveolar lavage abnormal [Unknown]
  - Tachypnoea [Unknown]
  - Interstitial lung disease [Unknown]
  - Circulatory collapse [Unknown]
  - Tachycardia [Unknown]
  - Therapy cessation [Unknown]
